FAERS Safety Report 9843326 (Version 1)
Quarter: 2013Q4

REPORT INFORMATION
  Report Type: Spontaneous
  Country: US (occurrence: None)
  Receive Date: 20131223
  Receipt Date: 20131223
  Transmission Date: 20140711
  Serious: No
  Sender: FDA-Public Use
  Company Number: 218835LEO

PATIENT
  Age: 63 Year
  Sex: Female

DRUGS (1)
  1. PICATO (0.05 %, GEL) [Suspect]
     Route: 061
     Dates: start: 201204

REACTIONS (4)
  - Application site burn [None]
  - Application site swelling [None]
  - Incorrect dose administered [None]
  - Off label use [None]
